FAERS Safety Report 14307837 (Version 6)
Quarter: 2022Q2

REPORT INFORMATION
  Report Type: Spontaneous
  Country: ES (occurrence: ES)
  Receive Date: 20171220
  Receipt Date: 20220405
  Transmission Date: 20220720
  Serious: Yes (Hospitalization, Other)
  Sender: FDA-Public Use
  Company Number: None

PATIENT
  Age: 78 Year
  Sex: Male

DRUGS (8)
  1. QUETIAPINE [Interacting]
     Active Substance: QUETIAPINE
     Indication: Psychomotor hyperactivity
     Dosage: 25 MILLIGRAM, QD
     Route: 048
     Dates: start: 20170928, end: 20171003
  2. QUETIAPINE [Interacting]
     Active Substance: QUETIAPINE
     Dosage: UNK
  3. QUETIAPINE [Suspect]
     Active Substance: QUETIAPINE
     Indication: Psychomotor hyperactivity
     Dosage: UNK
  4. MEROPENEM [Interacting]
     Active Substance: MEROPENEM
     Indication: Pyrexia
     Dosage: 3 GRAM, QD
     Route: 042
     Dates: start: 20171002, end: 20171010
  5. MEROPENEM [Interacting]
     Active Substance: MEROPENEM
     Indication: Urinary tract infection
  6. ERTAPENEM [Interacting]
     Active Substance: ERTAPENEM
     Indication: Pyrexia
     Dosage: 1 GRAM, QD
     Route: 042
     Dates: start: 20170929, end: 20171002
  7. ERTAPENEM [Interacting]
     Active Substance: ERTAPENEM
     Indication: Urinary tract infection
     Dosage: 1 GRAM, QD
  8. ERTAPENEM [Interacting]
     Active Substance: ERTAPENEM
     Dosage: UNK

REACTIONS (4)
  - Encephalopathy [Recovered/Resolved]
  - Product use in unapproved indication [Unknown]
  - Drug interaction [Unknown]
  - Off label use [Unknown]

NARRATIVE: CASE EVENT DATE: 20171002
